FAERS Safety Report 5669420-1 (Version None)
Quarter: 2008Q1

REPORT INFORMATION
  Report Type: 
  Country: None (occurrence: None)
  Receive Date: 20080317
  Receipt Date: 20080310
  Transmission Date: 20080703
  Serious: Yes (Hospitalization)
  Sender: FDA-Public Use
  Company Number: A0714329A

PATIENT
  Age: 16 Year
  Sex: Male

DRUGS (2)
  1. LAMICTAL [Suspect]
     Dosage: 50MG TWICE PER DAY
     Route: 048
     Dates: start: 20080215, end: 20080303
  2. UNKNOWN [Concomitant]

REACTIONS (9)
  - ANOREXIA [None]
  - BLISTER [None]
  - DEHYDRATION [None]
  - GROIN PAIN [None]
  - ILL-DEFINED DISORDER [None]
  - MOUTH ULCERATION [None]
  - OCULAR HYPERAEMIA [None]
  - PHARYNGEAL ULCERATION [None]
  - STEVENS-JOHNSON SYNDROME [None]
